FAERS Safety Report 8760682 (Version 1)
Quarter: 2012Q4

REPORT INFORMATION
  Report Type: 
  Country: BR (occurrence: BR)
  Receive Date: 20120830
  Receipt Date: 20120830
  Transmission Date: 20130627
  Serious: Yes (Other)
  Sender: FDA-Public Use
  Company Number: BR-JNJFOC-20120812460

PATIENT
  Age: 71 Year
  Sex: Female
  Weight: 54 kg

DRUGS (4)
  1. LISTERINE TOTAL CARE ZERO FRESH MINT [Suspect]
     Indication: DENTAL DISORDER PROPHYLAXIS
     Route: 002
     Dates: start: 20120807, end: 20120810
  2. LISTERINE TOTAL CARE ZERO FRESH MINT [Suspect]
     Indication: DENTAL DISORDER PROPHYLAXIS
     Route: 002
     Dates: start: 20120813
  3. CLONIDINE HYDROCHLORIDE [Concomitant]
     Indication: HYPERTENSION
     Route: 048
     Dates: start: 2009
  4. PURAN T4 [Concomitant]
     Indication: HYPOTHYROIDISM
     Route: 048
     Dates: start: 201202

REACTIONS (4)
  - Throat tightness [Recovered/Resolved]
  - Nasal disorder [Recovered/Resolved]
  - Product taste abnormal [Unknown]
  - Product quality issue [Unknown]
